FAERS Safety Report 8042515-3 (Version None)
Quarter: 2012Q1

REPORT INFORMATION
  Report Type: 
  Country: None (occurrence: None)
  Receive Date: 20120112
  Receipt Date: 20120106
  Transmission Date: 20120608
  Serious: Yes (Hospitalization)
  Sender: FDA-Public Use
  Company Number: FR-SANOFI-AVENTIS-2012SA001120

PATIENT
  Age: 56 Year
  Sex: Male

DRUGS (5)
  1. VALACICLOVIR [Suspect]
     Route: 048
  2. DILTIAZEM [Suspect]
     Route: 048
  3. PLAVIX [Suspect]
     Route: 048
  4. MABCAMPATH [Suspect]
     Dosage: END DATE: END OF AUG-2011/ BEGINNING OF SEP-2011.
     Route: 042
     Dates: start: 20110510
  5. MICARDIS [Suspect]
     Route: 048

REACTIONS (1)
  - PLEURAL EFFUSION [None]
